FAERS Safety Report 24573453 (Version 2)
Quarter: 2024Q4

REPORT INFORMATION
  Report Type: Spontaneous
  Country: US (occurrence: US)
  Receive Date: 20241102
  Receipt Date: 20241226
  Transmission Date: 20250115
  Serious: Yes (Hospitalization, Other)
  Sender: AUROBINDO
  Company Number: US-AUROBINDO-AUR-APL-2024-053065

PATIENT
  Age: 51 Year
  Sex: Male
  Weight: 91.7 kg

DRUGS (4)
  1. BELINOSTAT [Suspect]
     Active Substance: BELINOSTAT
     Indication: Breast cancer metastatic
     Dosage: 1000 MILLIGRAM/SQ. METER (D1-5 OF 21 DAY CYCLE)
     Route: 042
     Dates: start: 20240909, end: 20240913
  2. TALAZOPARIB [Suspect]
     Active Substance: TALAZOPARIB
     Indication: Breast cancer metastatic
     Dosage: 1 MILLIGRAM, DAILY
     Route: 048
     Dates: start: 20240909, end: 20240926
  3. MORPHINE [Concomitant]
     Active Substance: MORPHINE
     Indication: Pain
     Dosage: 2 MILLIGRAM, Q4H
     Route: 065
  4. COMPAZINE [Concomitant]
     Active Substance: PROCHLORPERAZINE MALEATE
     Indication: Nausea
     Dosage: 5 MILLIGRAM, FOUR TIMES/DAY, PRN
     Route: 065

REACTIONS (1)
  - Colitis [Recovered/Resolved]

NARRATIVE: CASE EVENT DATE: 20241020
